FAERS Safety Report 10036062 (Version 2)
Quarter: 2014Q2

REPORT INFORMATION
  Report Type: Spontaneous
  Country: IE (occurrence: IE)
  Receive Date: 20140325
  Receipt Date: 20140407
  Transmission Date: 20141212
  Serious: Yes (Hospitalization, Other)
  Sender: FDA-Public Use
  Company Number: US-ASTRAZENECA-2014SE19916

PATIENT
  Sex: Female

DRUGS (7)
  1. SYNAGIS [Suspect]
     Indication: HEART DISEASE CONGENITAL
     Route: 030
     Dates: start: 20131021, end: 20131021
  2. SYNAGIS [Suspect]
     Indication: HEART DISEASE CONGENITAL
     Route: 030
  3. DESMOPRESSIN [Concomitant]
  4. OMEPRAZOLE [Concomitant]
  5. ERYTHROMYCIN [Concomitant]
  6. KEPPRA [Concomitant]
  7. ZANTAC [Concomitant]

REACTIONS (2)
  - Heart rate decreased [Recovered/Resolved]
  - Respiratory tract congestion [Recovering/Resolving]
